FAERS Safety Report 19125621 (Version 2)
Quarter: 2021Q2

REPORT INFORMATION
  Report Type: Spontaneous
  Country: US (occurrence: US)
  Receive Date: 20210412
  Receipt Date: 20210416
  Transmission Date: 20210717
  Serious: Yes (Other)
  Sender: FDA-Public Use
  Company Number: US-ORGANON-2011USA015317

PATIENT
  Age: 22 Year
  Sex: Female
  Weight: 90.72 kg

DRUGS (2)
  1. NEXPLANON [Suspect]
     Active Substance: ETONOGESTREL
     Indication: CONTRACEPTION
     Dosage: 1 IMPLANT (68 MILLIGRAM), DAILY
     Route: 059
     Dates: start: 20181011
  2. NEXPLANON [Suspect]
     Active Substance: ETONOGESTREL
     Indication: CONTRACEPTION
     Dosage: 1 DOSAGE FORM, ONCE(1 IMPLANT), LEFT ARM
     Route: 059
     Dates: start: 20210115

REACTIONS (4)
  - Device breakage [Not Recovered/Not Resolved]
  - Pregnancy with implant contraceptive [Unknown]
  - Device kink [Not Recovered/Not Resolved]
  - Unintended pregnancy [Unknown]

NARRATIVE: CASE EVENT DATE: 201811
